FAERS Safety Report 5029889-2 (Version None)
Quarter: 2006Q2

REPORT INFORMATION
  Report Type: 
  Country: None (occurrence: None)
  Receive Date: 20060614
  Receipt Date: 20060605
  Transmission Date: 20061013
  Serious: Yes (Life-Threatening, Hospitalization)
  Sender: FDA-Public Use
  Company Number: 200511713BWH

PATIENT
  Age: 58 Year
  Sex: Female
  Weight: 94 kg

DRUGS (16)
  1. SORAFENIB [Suspect]
     Indication: METASTATIC MALIGNANT MELANOMA
     Dosage: 400 MG, BID, ORAL
     Route: 048
     Dates: start: 20050524
  2. DACARBAZINE [Suspect]
     Dosage: Q3WK, INTRAVENOUS
     Route: 042
  3. COMPAZINE [Concomitant]
  4. EX-LAX [Concomitant]
  5. ^FIBER^ PILLS [Concomitant]
  6. OXYCODONE HCL [Concomitant]
  7. KEFLEX [Concomitant]
  8. TUCKS [BENZALKONIUM CHLORIDE, GLYCEROL, HAMAMELIS VIRGINIANA] [Concomitant]
  9. COLACE [Concomitant]
  10. NYSTATIN [Concomitant]
  11. IBUPROFEN [Concomitant]
  12. PAXIL [Concomitant]
  13. PREMARIN [Concomitant]
  14. LIPITOR [Concomitant]
  15. ALLEGRA [Concomitant]
  16. DILAUDID [Concomitant]

REACTIONS (7)
  - ACTIVATED PARTIAL THROMBOPLASTIN TIME PROLONGED [None]
  - BLOOD PRESSURE INCREASED [None]
  - HEART RATE INCREASED [None]
  - POOR QUALITY SLEEP [None]
  - PROTHROMBIN TIME PROLONGED [None]
  - PULMONARY EMBOLISM [None]
  - RESPIRATORY RATE INCREASED [None]
